FAERS Safety Report 9753230 (Version 2)
Quarter: 2013Q4

REPORT INFORMATION
  Report Type: Spontaneous
  Country: US (occurrence: US)
  Receive Date: 20131213
  Receipt Date: 20131213
  Transmission Date: 20140711
  Serious: No
  Sender: FDA-Public Use
  Company Number: US-GILEAD-2010-0026979

PATIENT
  Sex: Female
  Weight: 72.57 kg

DRUGS (12)
  1. LETAIRIS [Suspect]
     Indication: PULMONARY ARTERIAL HYPERTENSION
     Route: 048
     Dates: start: 20080620, end: 20100119
  2. AVAPRO [Concomitant]
  3. SOTALOL [Concomitant]
  4. LEXAPRO [Concomitant]
  5. SINGULAIR [Concomitant]
  6. XYZAL [Concomitant]
  7. CELLCEPT [Concomitant]
  8. PREDNISONE [Concomitant]
  9. LUNESTA [Concomitant]
  10. NEXIUM [Concomitant]
  11. FERROUS SULFATE [Concomitant]
  12. CALCIUM [Concomitant]

REACTIONS (1)
  - Asthenia [Unknown]
